FAERS Safety Report 10097466 (Version 1)
Quarter: 2014Q2

REPORT INFORMATION
  Report Type: Report from Study
  Country: US (occurrence: US)
  Receive Date: 20140423
  Receipt Date: 20140423
  Transmission Date: 20141212
  Serious: Yes (Hospitalization)
  Sender: FDA-Public Use
  Company Number: US-ROCHE-1382516

PATIENT
  Age: 69 Year
  Sex: Female

DRUGS (1)
  1. PEG-INTERFERON ALFA 2A [Suspect]
     Indication: ESSENTIAL THROMBOCYTHAEMIA
     Route: 058

REACTIONS (1)
  - Jugular vein thrombosis [Unknown]
